FAERS Safety Report 11894644 (Version 1)
Quarter: 2016Q1

REPORT INFORMATION
  Report Type: Spontaneous
  Country: US (occurrence: US)
  Receive Date: 20160107
  Receipt Date: 20160107
  Transmission Date: 20160526
  Serious: No
  Sender: FDA-Public Use
  Company Number: US-DRREDDYS-USA/USA/15/0049297

PATIENT
  Age: 53 Year
  Sex: Male

DRUGS (1)
  1. HABITROL [Suspect]
     Active Substance: NICOTINE
     Indication: SMOKING CESSATION THERAPY
     Route: 062

REACTIONS (5)
  - Application site erythema [Recovering/Resolving]
  - Product adhesion issue [Unknown]
  - Application site pruritus [Recovering/Resolving]
  - Application site paraesthesia [Recovering/Resolving]
  - Application site pain [Recovering/Resolving]
